FAERS Safety Report 5145689-7 (Version None)
Quarter: 2006Q4

REPORT INFORMATION
  Report Type: 
  Country: None (occurrence: None)
  Receive Date: 20061102
  Receipt Date: 20061023
  Transmission Date: 20070319
  Serious: Yes (Disabling)
  Sender: FDA-Public Use
  Company Number: 06H-056-0310894-00

PATIENT
  Age: 57 Year
  Sex: Male

DRUGS (5)
  1. VANCOMYCIN HYDROCHLORIDE [Suspect]
     Indication: SEPSIS
  2. GENTAMICIN [Suspect]
     Indication: SEPSIS
  3. IMIPENEM (IMIPENEM) [Suspect]
     Indication: SEPSIS
  4. CIPROFLOXACIN [Suspect]
     Indication: SEPSIS
  5. ASCORBIC ACID [Concomitant]

REACTIONS (4)
  - HAEMODIALYSIS [None]
  - HYPEROXALURIA [None]
  - RENAL FAILURE ACUTE [None]
  - SEPSIS [None]
